FAERS Safety Report 9404828 (Version 1)
Quarter: 2013Q3

REPORT INFORMATION
  Report Type: Spontaneous
  Country: US (occurrence: None)
  Receive Date: 20130716
  Receipt Date: 20130716
  Transmission Date: 20140515
  Serious: No
  Sender: FDA-Public Use
  Company Number: None

PATIENT
  Age: 61 Year
  Sex: Female
  Weight: 62.6 kg

DRUGS (18)
  1. COPAXONE [Suspect]
     Indication: MULTIPLE SCLEROSIS RELAPSE
     Dates: start: 20120721, end: 20130530
  2. COPAXONE [Suspect]
     Dates: start: 20120721, end: 20130530
  3. PROZAC [Concomitant]
  4. NEURONTIN [Concomitant]
  5. TRAZODONE [Concomitant]
  6. MONISTAT [Concomitant]
  7. ALPHA LIPOIC [Concomitant]
  8. ASPIRIN [Concomitant]
  9. VITAMIN C [Concomitant]
  10. CALCIUM +D [Concomitant]
  11. VIT D3 [Concomitant]
  12. L-LYSINE [Concomitant]
  13. MULTIVIT [Concomitant]
  14. ALEVE [Concomitant]
  15. OMEGA 3 [Concomitant]
  16. PROBIOTIC [Concomitant]
  17. METAMUCID [Concomitant]
  18. VIT A+D [Concomitant]

REACTIONS (17)
  - Stupor [None]
  - Depersonalisation [None]
  - Disturbance in attention [None]
  - Depression [None]
  - Fatigue [None]
  - Fatigue [None]
  - Memory impairment [None]
  - Injection site pain [None]
  - Injection site pain [None]
  - Injection site atrophy [None]
  - Social avoidant behaviour [None]
  - Gait disturbance [None]
  - Pain [None]
  - Pain in extremity [None]
  - Pain in extremity [None]
  - Visual impairment [None]
  - Musculoskeletal pain [None]
